FAERS Safety Report 4728475-9 (Version None)
Quarter: 2005Q3

REPORT INFORMATION
  Report Type: 
  Country: None (occurrence: None)
  Receive Date: 20050729
  Receipt Date: 20040609
  Transmission Date: 20060218
  Serious: No
  Sender: FDA-Public Use
  Company Number: 1-15011216

PATIENT
  Age: 61 Year
  Sex: Male

DRUGS (5)
  1. ZANTAC [Suspect]
     Indication: DRUG USE FOR UNKNOWN INDICATION
     Dosage: 150MG TWICE PER DAY
     Route: 048
     Dates: start: 20040607
  2. VALTREX [Suspect]
     Indication: IMMUNOSUPPRESSANT DRUG THERAPY
     Dosage: 500MG PER DAY
     Route: 048
  3. TAGAMET [Suspect]
     Dosage: 400MG TWICE PER DAY
     Route: 048
     Dates: start: 20040611
  4. MYLANTA [Concomitant]
  5. LOMOTIL [Concomitant]

REACTIONS (6)
  - ABDOMINAL PAIN [None]
  - CONSTIPATION [None]
  - DIZZINESS [None]
  - DRY MOUTH [None]
  - MEMORY IMPAIRMENT [None]
  - SOMNOLENCE [None]
